FAERS Safety Report 21087830 (Version 2)
Quarter: 2022Q3

REPORT INFORMATION
  Report Type: Spontaneous
  Country: US (occurrence: US)
  Receive Date: 20220715
  Receipt Date: 20220726
  Transmission Date: 20221027
  Serious: No
  Sender: FDA-Public Use
  Company Number: US-KYOWAKIRIN-2022BKK010931

PATIENT

DRUGS (1)
  1. CRYSVITA [Suspect]
     Active Substance: BUROSUMAB-TWZA
     Indication: Hereditary hypophosphataemic rickets
     Dosage: ROUGHLY 2 YEARS AGO,1X/MONTH
     Route: 065

REACTIONS (4)
  - Feeling abnormal [Not Recovered/Not Resolved]
  - Irritability [Unknown]
  - Menstrual disorder [Unknown]
  - Drug ineffective [Unknown]
